FAERS Safety Report 9954881 (Version 2)
Quarter: 2014Q2

REPORT INFORMATION
  Report Type: Spontaneous
  Country: JP (occurrence: JP)
  Receive Date: 20140304
  Receipt Date: 20140417
  Transmission Date: 20141212
  Serious: Yes (Other)
  Sender: FDA-Public Use
  Company Number: JP-PFIZER INC-2014057154

PATIENT
  Age: 92 Year
  Sex: Male

DRUGS (4)
  1. DETRUSITOL [Suspect]
     Dosage: 2 MG, DAILY
     Route: 048
     Dates: start: 201310, end: 201312
  2. DETRUSITOL [Suspect]
     Dosage: UNK
     Route: 048
     Dates: start: 201401
  3. WARFARIN [Concomitant]
     Dosage: 1.75 MG, DAILY
     Route: 048
  4. BONALON [Concomitant]
     Dosage: 35 MG, WEEKLY
     Route: 048

REACTIONS (1)
  - Phimosis [Unknown]
